FAERS Safety Report 20701593 (Version 2)
Quarter: 2022Q2

REPORT INFORMATION
  Report Type: Spontaneous
  Country: US (occurrence: US)
  Receive Date: 20220412
  Receipt Date: 20220423
  Transmission Date: 20220721
  Serious: Yes (Other)
  Sender: FDA-Public Use
  Company Number: US-AMGEN-USASP2022057617

PATIENT
  Age: 70 Year
  Sex: Female

DRUGS (1)
  1. PROLIA [Suspect]
     Active Substance: DENOSUMAB
     Indication: Osteoporosis postmenopausal
     Dosage: 1 DOSAGE FORM, Q6MO
     Route: 065
     Dates: start: 2018

REACTIONS (1)
  - Humerus fracture [Unknown]

NARRATIVE: CASE EVENT DATE: 20211101
